FAERS Safety Report 20066725 (Version 1)
Quarter: 2021Q4

REPORT INFORMATION
  Report Type: Report from Study
  Country: CA (occurrence: CA)
  Receive Date: 20211115
  Receipt Date: 20211115
  Transmission Date: 20220303
  Serious: Yes (Other)
  Sender: FDA-Public Use
  Company Number: CA-ABBVIE-21K-028-4157969-00

PATIENT
  Sex: Male

DRUGS (1)
  1. HUMIRA [Suspect]
     Active Substance: ADALIMUMAB
     Indication: Crohn^s disease
     Route: 058
     Dates: start: 20181123

REACTIONS (13)
  - Skin laceration [Unknown]
  - Hip arthroplasty [Unknown]
  - Arthralgia [Unknown]
  - Accident [Unknown]
  - Decreased appetite [Unknown]
  - Anal fissure [Not Recovered/Not Resolved]
  - Hypophagia [Unknown]
  - Fall [Recovered/Resolved]
  - Muscle spasms [Recovering/Resolving]
  - Unevaluable event [Unknown]
  - Diarrhoea [Recovering/Resolving]
  - Gait disturbance [Unknown]
  - Pain [Unknown]

NARRATIVE: CASE EVENT DATE: 20200101
